FAERS Safety Report 12767041 (Version 1)
Quarter: 2016Q3

REPORT INFORMATION
  Report Type: Spontaneous
  Country: DE (occurrence: RU)
  Receive Date: 20160921
  Receipt Date: 20160921
  Transmission Date: 20161109
  Serious: Yes (Other)
  Sender: FDA-Public Use
  Company Number: DE-ACTELION-A-US2016-142581

PATIENT
  Sex: Female

DRUGS (12)
  1. BETALOC [Concomitant]
     Active Substance: METOPROLOL TARTRATE
  2. DIGOXIN. [Concomitant]
     Active Substance: DIGOXIN
  3. TRACLEER [Suspect]
     Active Substance: BOSENTAN
     Indication: PULMONARY ARTERIAL HYPERTENSION
     Route: 048
  4. OMEPRAZOLE. [Concomitant]
     Active Substance: OMEPRAZOLE
  5. DICARB [Concomitant]
  6. OPSUMIT [Concomitant]
     Active Substance: MACITENTAN
     Route: 048
  7. VEROSPIRON [Concomitant]
     Active Substance: SPIRONOLACTONE
  8. ACETAZOLAMIDE. [Concomitant]
     Active Substance: ACETAZOLAMIDE
  9. FUROSEMIDE. [Concomitant]
     Active Substance: FUROSEMIDE
  10. VENTAVIS [Suspect]
     Active Substance: ILOPROST
     Indication: PULMONARY ARTERIAL HYPERTENSION
     Dosage: 6X/DAILY
     Route: 055
  11. HYDROCHLOROTHIAZIDE. [Concomitant]
     Active Substance: HYDROCHLOROTHIAZIDE
  12. SILDENAFIL. [Suspect]
     Active Substance: SILDENAFIL
     Indication: PRODUCT USED FOR UNKNOWN INDICATION
     Route: 065

REACTIONS (9)
  - Oedema [Recovered/Resolved]
  - Dyspnoea exertional [Unknown]
  - Oedema peripheral [Unknown]
  - Intentional product misuse [Unknown]
  - Erythema [Unknown]
  - Cardiac failure [Unknown]
  - Transaminases increased [Unknown]
  - Heart rate increased [Unknown]
  - Chest pain [Unknown]
